FAERS Safety Report 19394049 (Version 3)
Quarter: 2021Q4

REPORT INFORMATION
  Report Type: Spontaneous
  Country: US (occurrence: US)
  Receive Date: 20210609
  Receipt Date: 20211104
  Transmission Date: 20220303
  Serious: No
  Sender: FDA-Public Use
  Company Number: US-PFIZER INC-2021542177

PATIENT
  Age: 37 Year
  Sex: Male
  Weight: 79.38 kg

DRUGS (1)
  1. CAVERJECT IMPULSE [Suspect]
     Active Substance: ALPROSTADIL
     Indication: Erectile dysfunction
     Dosage: 20 UG

REACTIONS (3)
  - Blood cholesterol decreased [Unknown]
  - Drug dose omission by device [Unknown]
  - Product quality issue [Unknown]

NARRATIVE: CASE EVENT DATE: 20210508
